FAERS Safety Report 13055248 (Version 3)
Quarter: 2019Q2

REPORT INFORMATION
  Report Type: Spontaneous
  Country: GB (occurrence: GB)
  Receive Date: 20161222
  Receipt Date: 20190613
  Transmission Date: 20190711
  Serious: No
  Sender: FDA-Public Use
  Company Number: GB-TEVA-720738ACC

PATIENT
  Sex: Female

DRUGS (3)
  1. CYCLOGEST [Suspect]
     Active Substance: PROGESTERONE
     Route: 065
  2. ASPIRIN. [Concomitant]
     Active Substance: ASPIRIN
  3. FRAGMIN [Concomitant]
     Active Substance: DALTEPARIN SODIUM

REACTIONS (2)
  - Exposure during pregnancy [Unknown]
  - Live birth [Unknown]
